FAERS Safety Report 19245319 (Version 1)
Quarter: 2021Q2

REPORT INFORMATION
  Report Type: Spontaneous
  Country: US (occurrence: US)
  Receive Date: 20210511
  Receipt Date: 20210511
  Transmission Date: 20210717
  Serious: No
  Sender: FDA-Public Use
  Company Number: US-US-PROVELL PHARMACEUTICALS LLC-9235218

PATIENT
  Age: 36 Year
  Sex: Female
  Weight: 61 kg

DRUGS (3)
  1. LEVOTHYROXINE. [Suspect]
     Active Substance: LEVOTHYROXINE
     Indication: HYPOTHYROIDISM
     Dates: end: 202007
  2. LEVOTHYROXINE. [Suspect]
     Active Substance: LEVOTHYROXINE
     Dosage: 25 UG EUTHYROX+75 UG LEVOTHYROXINE ONE DAY AND FOLLOWING DAY WITH ONLY 75 UG OF LEVOTHYROXINE
     Dates: start: 202007
  3. EUTHYROX [Suspect]
     Active Substance: LEVOTHYROXINE SODIUM
     Indication: HYPOTHYROIDISM
     Dates: start: 202007

REACTIONS (4)
  - Dermatitis [Unknown]
  - Skin burning sensation [Unknown]
  - Photosensitivity reaction [Unknown]
  - Pruritus [Unknown]

NARRATIVE: CASE EVENT DATE: 202010
